FAERS Safety Report 4365616-X (Version None)
Quarter: 2004Q2

REPORT INFORMATION
  Report Type: 
  Country: None (occurrence: None)
  Receive Date: 20040520
  Receipt Date: 20040514
  Transmission Date: 20050107
  Serious: Yes (Death)
  Sender: FDA-Public Use
  Company Number: US-JNJFOC-20040406369

PATIENT
  Age: 76 Year
  Sex: Female

DRUGS (2)
  1. DITROPAN [Suspect]
     Indication: CYSTITIS
     Dosage: 5 MG, 3 IN 1 DAY, ORAL
     Route: 048
  2. DITROPAN [Suspect]
     Indication: TRIGONITIS
     Dosage: 5 MG, 3 IN 1 DAY, ORAL
     Route: 048

REACTIONS (1)
  - DISCOMFORT [None]
